FAERS Safety Report 16057722 (Version 1)
Quarter: 2019Q1

REPORT INFORMATION
  Report Type: Spontaneous
  Country: US (occurrence: US)
  Receive Date: 20190311
  Receipt Date: 20190311
  Transmission Date: 20190418
  Serious: Yes (Disabling, Other)
  Sender: FDA-Public Use
  Company Number: US-REGENERON PHARMACEUTICALS, INC.-2019-21348

PATIENT

DRUGS (4)
  1. EYLEA [Suspect]
     Active Substance: AFLIBERCEPT
     Dosage: UNK, OS
     Route: 031
     Dates: start: 201711, end: 201711
  2. SIMVASTATIN. [Concomitant]
     Active Substance: SIMVASTATIN
     Indication: PRODUCT USED FOR UNKNOWN INDICATION
  3. EYLEA [Suspect]
     Active Substance: AFLIBERCEPT
     Indication: NEOVASCULAR AGE-RELATED MACULAR DEGENERATION
     Dosage: UNK, OD
     Route: 031
     Dates: start: 2012
  4. EYLEA [Suspect]
     Active Substance: AFLIBERCEPT
     Dosage: UNK, EVERY 31 TO 35 DAYS, LAST INJECTION TO OD
     Route: 031
     Dates: start: 201902, end: 201902

REACTIONS (12)
  - Blindness transient [Recovered/Resolved]
  - Type 2 diabetes mellitus [Unknown]
  - Photophobia [Recovered/Resolved]
  - Vitreous floaters [Recovered/Resolved]
  - Photopsia [Recovered/Resolved]
  - Vision blurred [Unknown]
  - Eye infection [Unknown]
  - Ocular hyperaemia [Unknown]
  - Disease progression [Unknown]
  - Blindness unilateral [Not Recovered/Not Resolved]
  - Retinal detachment [Unknown]
  - Eye operation [Unknown]

NARRATIVE: CASE EVENT DATE: 201711
